FAERS Safety Report 10649873 (Version 3)
Quarter: 2015Q1

REPORT INFORMATION
  Report Type: Report from Study
  Country: IL (occurrence: IL)
  Receive Date: 20141212
  Receipt Date: 20150306
  Transmission Date: 20150720
  Serious: Yes (Hospitalization)
  Sender: FDA-Public Use
  Company Number: IL-009507513-1406ISR012480

PATIENT
  Age: 72 Year
  Sex: Male
  Weight: 75 kg

DRUGS (17)
  1. PEMBROLIZUMAB. [Suspect]
     Active Substance: PEMBROLIZUMAB
     Indication: HEAD AND NECK CANCER
     Dosage: 10 MG/KG, Q2W
     Route: 042
     Dates: start: 20131006, end: 20140218
  2. HEMP [Concomitant]
     Active Substance: HEMP
     Indication: ORAL DISCOMFORT
     Dosage: FORMULATION INHALANT, FREQUENCY OTHER, ROUTE OTHER
     Route: 050
     Dates: start: 20131212
  3. OPTALGIN [Concomitant]
     Active Substance: METAMIZOLE
     Indication: PAIN
     Dosage: 500 MG, BID
     Route: 048
     Dates: start: 20140224
  4. BONDORMIN [Concomitant]
     Indication: INSOMNIA
     Dosage: 0.25 MG, QD
     Route: 048
     Dates: start: 201301, end: 20140428
  5. BIOTENE [Concomitant]
     Active Substance: SODIUM MONOFLUOROPHOSPHATE
     Indication: ORAL DISCOMFORT
     Dosage: UNK, BID
     Route: 050
     Dates: start: 201311, end: 20140504
  6. PHYSICARE [Concomitant]
     Indication: ARTHRITIS
     Dosage: 50 G, BID
     Dates: start: 20140121, end: 20140304
  7. CARDILOC [Concomitant]
     Active Substance: BISOPROLOL FUMARATE
     Indication: HYPERTENSION
     Dosage: 2.5 MG, QD
     Route: 048
     Dates: start: 20140210
  8. OXYCODONE HYDROCHLORIDE. [Concomitant]
     Active Substance: OXYCODONE HYDROCHLORIDE
     Indication: PAIN
     Dosage: UNK, UNKNOWN
     Route: 048
     Dates: start: 20140224
  9. FENTANYL. [Concomitant]
     Active Substance: FENTANYL
     Indication: PAIN
     Dosage: UNK, QOD
     Route: 050
     Dates: start: 20140228, end: 20140308
  10. FENTANYL. [Concomitant]
     Active Substance: FENTANYL
     Indication: PAIN
     Dosage: UNK, QOD
     Route: 061
     Dates: start: 20140210, end: 20140228
  11. LAXIKAL [Concomitant]
     Indication: CONSTIPATION
     Dosage: UNK, UNKNOWN
     Dates: start: 20140219, end: 20140413
  12. TEVAPIRIN [Concomitant]
     Indication: MYOCARDIAL ISCHAEMIA
     Dosage: 100 MG, QD
     Route: 048
     Dates: start: 198301
  13. FENTANYL CITRATE. [Concomitant]
     Active Substance: FENTANYL CITRATE
     Indication: PAIN
     Dosage: 100 MG, QID
     Route: 055
     Dates: start: 20140101, end: 20140428
  14. OXYCODONE HYDROCHLORIDE. [Concomitant]
     Active Substance: OXYCODONE HYDROCHLORIDE
     Indication: PAIN
     Dosage: UNK, UNKNOWN
     Route: 048
     Dates: start: 20140224
  15. PEMBROLIZUMAB. [Suspect]
     Active Substance: PEMBROLIZUMAB
     Dosage: 10 MG/KG, Q2W
     Route: 042
     Dates: start: 20140304, end: 20140304
  16. PEMBROLIZUMAB. [Suspect]
     Active Substance: PEMBROLIZUMAB
     Dosage: 10 MG/KG, Q2W
     Route: 042
     Dates: start: 20140318, end: 20140527
  17. SECRETS OF THE EAST LAXIN [Concomitant]
     Indication: CONSTIPATION
     Dosage: DAILY DOSE 2 ML, UNKNOWN
     Route: 048
     Dates: start: 20140210, end: 20140413

REACTIONS (1)
  - Cancer pain [Recovered/Resolved]

NARRATIVE: CASE EVENT DATE: 20140304
